FAERS Safety Report 5962612-3 (Version None)
Quarter: 2008Q4

REPORT INFORMATION
  Report Type: 
  Country: None (occurrence: None)
  Receive Date: 20081121
  Receipt Date: 20081113
  Transmission Date: 20090506
  Serious: Yes (Hospitalization, Other)
  Sender: FDA-Public Use
  Company Number: US-PFIZER INC-2008096722

PATIENT
  Sex: Female
  Weight: 60 kg

DRUGS (4)
  1. LIPITOR [Suspect]
     Dates: start: 20070101
  2. THYROID TAB [Concomitant]
  3. ESTROGENIC SUBSTANCE [Concomitant]
  4. CO-Q-10 [Concomitant]
     Indication: AMNESIA
     Dates: start: 20081001

REACTIONS (4)
  - AMNESIA [None]
  - HERPES ZOSTER OPHTHALMIC [None]
  - PNEUMONIA [None]
  - TREMOR [None]
